FAERS Safety Report 8887048 (Version 2)
Quarter: 2012Q4

REPORT INFORMATION
  Report Type: 
  Country: US (occurrence: US)
  Receive Date: 20121105
  Receipt Date: 20121107
  Transmission Date: 20130627
  Serious: Yes (Other)
  Sender: FDA-Public Use
  Company Number: US-JNJFOC-20121016936

PATIENT
  Sex: Male

DRUGS (2)
  1. MS PEPCID AC [Suspect]
     Route: 048
  2. MS PEPCID AC [Suspect]
     Indication: DYSPEPSIA
     Route: 048
     Dates: start: 20121025, end: 20121026

REACTIONS (4)
  - Loss of consciousness [Recovering/Resolving]
  - Asthenia [Not Recovered/Not Resolved]
  - Retching [Not Recovered/Not Resolved]
  - Dizziness [Not Recovered/Not Resolved]
